FAERS Safety Report 8621133-X (Version None)
Quarter: 2012Q3

REPORT INFORMATION
  Report Type: 
  Country: None (occurrence: None)
  Receive Date: 20120824
  Receipt Date: 20120820
  Transmission Date: 20120928
  Serious: Yes (Hospitalization, Disabling)
  Sender: FDA-Public Use
  Company Number: HR-ROCHE-1040888

PATIENT
  Age: 21 Year
  Sex: Female

DRUGS (1)
  1. ZELBORAF [Suspect]
     Indication: MALIGNANT MELANOMA
     Dosage: LAST DOSE PRIOR TO SAE: 06/FEB/2012
     Route: 048
     Dates: start: 20111209, end: 20120210

REACTIONS (1)
  - PANCREATITIS ACUTE [None]
